FAERS Safety Report 5499454-1 (Version None)
Quarter: 2007Q4

REPORT INFORMATION
  Report Type: 
  Country: None (occurrence: None)
  Receive Date: 20071026
  Receipt Date: 20071015
  Transmission Date: 20080405
  Serious: Yes (Hospitalization, Other)
  Sender: FDA-Public Use
  Company Number: IN-BRISTOL-MYERS SQUIBB COMPANY-13944145

PATIENT
  Age: 71 Year
  Sex: Male

DRUGS (5)
  1. BLINDED: SAXAGLIPTIN [Suspect]
     Dosage: 24JAN07-16SEP07,1 DOSAGE FORM=2 NO UNITS;17SEP07-15OCT07,1DOSAGE FORM=3 NOUNITS
     Route: 048
     Dates: start: 20070124, end: 20071015
  2. METFORMIN HCL [Suspect]
     Dosage: 1 DOSAGE FORM=3 UNITS NOT SPECIFIED
     Route: 048
     Dates: start: 20070917, end: 20071015
  3. PLACEBO [Suspect]
     Dosage: 08JAN07 TO 23JAN07 2 UNITS NOT SPECIFIED; 24JAN07 TO 16SEP07 2 UNITS NOT SPECIFIED
     Route: 048
     Dates: start: 20070108, end: 20070916
  4. DUOLIN [Concomitant]
     Dates: start: 20070829
  5. FORACORT [Concomitant]
     Dates: start: 20070829

REACTIONS (1)
  - LOSS OF CONSCIOUSNESS [None]
